FAERS Safety Report 5372631-6 (Version None)
Quarter: 2007Q2

REPORT INFORMATION
  Report Type: 
  Country: None (occurrence: None)
  Receive Date: 20070627
  Receipt Date: 20070618
  Transmission Date: 20071010
  Serious: Yes (Hospitalization)
  Sender: FDA-Public Use
  Company Number: US-PFIZER INC-2007040901

PATIENT
  Age: 73 Year
  Sex: Male
  Weight: 80.3 kg

DRUGS (1)
  1. LIPITOR [Suspect]

REACTIONS (4)
  - COGNITIVE DISORDER [None]
  - DISORIENTATION [None]
  - GLOBAL AMNESIA [None]
  - RETROGRADE AMNESIA [None]
